FAERS Safety Report 6885796-1 (Version None)
Quarter: 2010Q3

REPORT INFORMATION
  Report Type: 
  Country: None (occurrence: None)
  Receive Date: 20100729
  Receipt Date: 20080711
  Transmission Date: 20110219
  Serious: No
  Sender: FDA-Public Use
  Company Number: US-PFIZER INC-2008058251

PATIENT
  Sex: Male
  Weight: 87.727 kg

DRUGS (6)
  1. CELEBREX [Suspect]
     Indication: BACK PAIN
     Dates: start: 20080501
  2. LEVOTHYROXINE SODIUM [Concomitant]
  3. DYAZIDE [Concomitant]
  4. CLARINEX [Concomitant]
  5. LEXAPRO [Concomitant]
  6. BUPRENORPHINE HCL AND NALOXONE HCL [Concomitant]

REACTIONS (2)
  - DRUG SCREEN FALSE POSITIVE [None]
  - EXPIRED DRUG ADMINISTERED [None]
